FAERS Safety Report 5381438-5 (Version None)
Quarter: 2007Q3

REPORT INFORMATION
  Report Type: 
  Country: None (occurrence: None)
  Receive Date: 20070709
  Receipt Date: 20070628
  Transmission Date: 20080115
  Serious: Yes (Disabling)
  Sender: FDA-Public Use
  Company Number: FR-JNJFOC-20070600479

PATIENT
  Sex: Male

DRUGS (2)
  1. OFLOCET [Suspect]
     Route: 048
  2. OFLOCET [Suspect]
     Indication: PROSTATITIS
     Route: 048

REACTIONS (6)
  - ASTHENIA [None]
  - DISTURBANCE IN ATTENTION [None]
  - DRY EYE [None]
  - DRY MOUTH [None]
  - HEADACHE [None]
  - TENDONITIS [None]
